FAERS Safety Report 17841783 (Version 2)
Quarter: 2020Q2

REPORT INFORMATION
  Report Type: Report from Study
  Country: MX (occurrence: MX)
  Receive Date: 20200529
  Receipt Date: 20200612
  Transmission Date: 20200714
  Serious: Yes (Hospitalization, Other)
  Sender: FDA-Public Use
  Company Number: NVSC2020MX148391

PATIENT
  Age: 51 Year
  Sex: Female
  Weight: 73 kg

DRUGS (4)
  1. TIMOLOL. [Concomitant]
     Active Substance: TIMOLOL
     Indication: OPEN ANGLE GLAUCOMA
     Dosage: 1 DF, BID
     Route: 047
     Dates: start: 2017
  2. EXFORGE HCT [Suspect]
     Active Substance: AMLODIPINE BESYLATE\HYDROCHLOROTHIAZIDE\VALSARTAN
     Indication: TACHYCARDIA
     Dosage: 1 DF, QD
     Route: 048
     Dates: start: 202001
  3. EXFORGE HCT [Suspect]
     Active Substance: AMLODIPINE BESYLATE\HYDROCHLOROTHIAZIDE\VALSARTAN
     Indication: HYPERTENSION
     Dosage: 1 DF, QD
     Route: 048
     Dates: start: 20191001, end: 20191224
  4. HYPROMELLOSE [Concomitant]
     Active Substance: HYPROMELLOSES
     Dosage: 1 DF, Q4H
     Route: 065
     Dates: start: 2017

REACTIONS (12)
  - Calcification of muscle [Recovered/Resolved]
  - Blister [Recovered/Resolved]
  - Atrophy [Recovering/Resolving]
  - Inflammation [Not Recovered/Not Resolved]
  - Blood triglycerides increased [Unknown]
  - Blood cholesterol increased [Unknown]
  - Postoperative wound infection [Recovered/Resolved]
  - Skin injury [Recovered/Resolved]
  - Pain [Recovered/Resolved]
  - Pigmentation disorder [Not Recovered/Not Resolved]
  - Product use in unapproved indication [Unknown]
  - Meniscus injury [Recovering/Resolving]

NARRATIVE: CASE EVENT DATE: 20191008
